FAERS Safety Report 9779270 (Version 1)
Quarter: 2013Q4

REPORT INFORMATION
  Report Type: Spontaneous
  Country: US (occurrence: US)
  Receive Date: 20131223
  Receipt Date: 20131223
  Transmission Date: 20140711
  Serious: No
  Sender: FDA-Public Use
  Company Number: US-PFIZER INC-2013365199

PATIENT
  Sex: Female

DRUGS (2)
  1. GABAPENTIN [Suspect]
     Indication: SPINAL COLUMN STENOSIS
     Dosage: 300 MG, UNK
     Dates: start: 201303
  2. GABAPENTIN [Suspect]
     Indication: PAIN
     Dosage: 400 MG, 7-8 HOURS BETWEEN DOSES
     Dates: end: 201310

REACTIONS (3)
  - Off label use [Unknown]
  - Feeling abnormal [Unknown]
  - Drug ineffective for unapproved indication [Unknown]
